FAERS Safety Report 24972311 (Version 2)
Quarter: 2025Q3

REPORT INFORMATION
  Report Type: Report from Study
  Country: US (occurrence: None)
  Receive Date: 20250214
  Receipt Date: 20250810
  Transmission Date: 20251021
  Serious: No
  Sender: ALEXION PHARMACEUTICALS
  Company Number: US-AstraZeneca-2013SE83747

PATIENT
  Age: 91 Year
  Sex: Female
  Weight: 64.41 kg

DRUGS (5)
  1. ARIMIDEX [Suspect]
     Active Substance: ANASTROZOLE
     Indication: Breast cancer
     Dosage: 1 MILLIGRAM, QD
     Dates: start: 2002, end: 201311
  2. ARIMIDEX [Suspect]
     Active Substance: ANASTROZOLE
  3. NEXIUM [Suspect]
     Active Substance: ESOMEPRAZOLE MAGNESIUM
     Dosage: 40 MILLIGRAM, QD
     Dates: start: 2003
  4. NEXIUM [Suspect]
     Active Substance: ESOMEPRAZOLE MAGNESIUM
  5. STOOL SOFTENER (DOCUSATE) [Concomitant]
     Active Substance: DOCUSATE

REACTIONS (17)
  - Pruritus [Recovering/Resolving]
  - Osteoarthritis [Unknown]
  - Hiatus hernia [Unknown]
  - Eye disorder [Unknown]
  - Swelling [Unknown]
  - Peripheral swelling [Unknown]
  - Pain in extremity [Recovered/Resolved with Sequelae]
  - Memory impairment [Unknown]
  - Hypoacusis [Not Recovered/Not Resolved]
  - Body height decreased [Not Recovered/Not Resolved]
  - Fall [Unknown]
  - Somnolence [Unknown]
  - Malaise [Unknown]
  - Fatigue [Unknown]
  - Balance disorder [Unknown]
  - Intentional product misuse [Unknown]
  - Product use in unapproved indication [Unknown]
